FAERS Safety Report 8143137-6 (Version None)
Quarter: 2012Q1

REPORT INFORMATION
  Report Type: 
  Country: None (occurrence: None)
  Receive Date: 20120217
  Receipt Date: 20120214
  Transmission Date: 20120608
  Serious: No
  Sender: FDA-Public Use
  Company Number: US-PFIZER INC-2012039710

PATIENT
  Sex: Female

DRUGS (3)
  1. LEVOXYL [Suspect]
     Dosage: 125 UG, 1X/DAY (50 MCG TEO AND HALF TABLET)
     Route: 048
  2. LEVOXYL [Suspect]
     Dosage: 137 UG, 1X/DAY
     Route: 048
  3. LEVOXYL [Suspect]
     Indication: THYROID DISORDER
     Dosage: 150 UG, 1X/DAY
     Route: 048
     Dates: start: 20110601

REACTIONS (5)
  - HYPERSENSITIVITY [None]
  - BLOOD THYROID STIMULATING HORMONE ABNORMAL [None]
  - PRURITUS [None]
  - RASH PRURITIC [None]
  - RASH [None]
